FAERS Safety Report 8922800 (Version 2)
Quarter: 2013Q1

REPORT INFORMATION
  Report Type: Report from Study
  Country: CA (occurrence: CA)
  Receive Date: 20121123
  Receipt Date: 20130211
  Transmission Date: 20140127
  Serious: Yes (Other)
  Sender: FDA-Public Use
  Company Number: CA-JNJFOC-20121107962

PATIENT
  Sex: Male
  Weight: 105.5 kg

DRUGS (12)
  1. REMICADE [Suspect]
     Indication: PSORIATIC ARTHROPATHY
     Route: 042
     Dates: start: 20061206
  2. REMICADE [Suspect]
     Indication: PSORIATIC ARTHROPATHY
     Route: 042
     Dates: start: 20120924
  3. REMICADE [Suspect]
     Indication: PSORIATIC ARTHROPATHY
     Route: 042
     Dates: start: 20121115
  4. METHOTREXATE [Concomitant]
     Indication: PSORIATIC ARTHROPATHY
     Route: 048
  5. DILTIAZEM [Concomitant]
     Indication: HYPERTENSION
     Route: 065
  6. MODULON [Concomitant]
     Indication: GASTROINTESTINAL DISORDER
     Route: 065
  7. FOLIC ACID [Concomitant]
     Route: 065
  8. INDAPAMIDE [Concomitant]
     Indication: HYPERTENSION
     Route: 065
  9. ALLOPURINOL [Concomitant]
     Indication: GOUT
     Route: 048
  10. COLCHICINE [Concomitant]
     Indication: GOUT
     Route: 065
  11. METFORMIN [Concomitant]
     Indication: TYPE 2 DIABETES MELLITUS
     Route: 065
  12. LOSEC [Concomitant]
     Indication: GASTROINTESTINAL DISORDER
     Route: 065

REACTIONS (3)
  - Hyperhidrosis [Recovered/Resolved]
  - Chest pain [Recovered/Resolved]
  - Dyspnoea [Recovered/Resolved]
